FAERS Safety Report 24242511 (Version 2)
Quarter: 2024Q3

REPORT INFORMATION
  Report Type: Spontaneous
  Country: US (occurrence: US)
  Receive Date: 20240823
  Receipt Date: 20240904
  Transmission Date: 20241017
  Serious: No
  Sender: TORRENT
  Company Number: US-TORRENT-00013722

PATIENT
  Age: 17 Year
  Sex: Female
  Weight: 87 kg

DRUGS (1)
  1. TIOPRONIN [Suspect]
     Active Substance: TIOPRONIN
     Indication: Cystinuria
     Dosage: TWICE A DAY
     Route: 065
     Dates: start: 20240819

REACTIONS (1)
  - Off label use [Unknown]
